FAERS Safety Report 4403040-1 (Version None)
Quarter: 2004Q3

REPORT INFORMATION
  Report Type: 
  Country: None (occurrence: None)
  Receive Date: 20040721
  Receipt Date: 20040121
  Transmission Date: 20050211
  Serious: No
  Sender: FDA-Public Use
  Company Number: US-GLAXOSMITHKLINE-A0494473A

PATIENT
  Age: 48 Year
  Sex: Female

DRUGS (4)
  1. IMITREX [Suspect]
     Indication: MIGRAINE
     Dosage: 100MG AS REQUIRED
     Route: 048
     Dates: start: 20040110, end: 20040111
  2. ADVIL [Concomitant]
  3. PREVACID [Concomitant]
  4. CARAFATE [Concomitant]
     Route: 065

REACTIONS (2)
  - ASTHENIA [None]
  - FEELING ABNORMAL [None]
